FAERS Safety Report 8764794 (Version 1)
Quarter: 2012Q4

REPORT INFORMATION
  Report Type: 
  Country: CN (occurrence: CN)
  Receive Date: 20120831
  Receipt Date: 20120831
  Transmission Date: 20130627
  Serious: Yes (Other)
  Sender: FDA-Public Use
  Company Number: CN-ROCHE-1110405

PATIENT
  Age: 52 Year
  Sex: Male
  Weight: 64 kg

DRUGS (3)
  1. CELLCEPT [Suspect]
     Indication: RENAL TRANSPLANT
     Dosage: 0.75g in the morning, 1.0g in the evening
     Route: 048
     Dates: start: 20080131, end: 20080407
  2. TACROLIMUS [Suspect]
     Indication: RENAL TRANSPLANT
     Dosage: 5mg in the morning, 6mg in the evening
     Route: 048
     Dates: start: 20080131, end: 20080609
  3. PREDNISONE [Concomitant]
     Indication: RENAL TRANSPLANT

REACTIONS (3)
  - Full blood count decreased [Recovering/Resolving]
  - Lung infection [Recovering/Resolving]
  - Hydrothorax [Recovering/Resolving]
